FAERS Safety Report 4370985-0 (Version None)
Quarter: 2004Q2

REPORT INFORMATION
  Report Type: 
  Country: None (occurrence: None)
  Receive Date: 20040603
  Receipt Date: 20040603
  Transmission Date: 20050107
  Serious: Yes (Life-Threatening)
  Sender: FDA-Public Use
  Company Number: None

PATIENT
  Age: 80 Year
  Sex: Female
  Weight: 54.4316 kg

DRUGS (1)
  1. INFED [Suspect]
     Dosage: 25 MG /0.5 ML TEST DOSE

REACTIONS (7)
  - AGGRESSION [None]
  - COMA [None]
  - HEART RATE INCREASED [None]
  - KUSSMAUL RESPIRATION [None]
  - POSTICTAL STATE [None]
  - RESPIRATORY RATE DECREASED [None]
  - URINARY INCONTINENCE [None]
